FAERS Safety Report 4318875-3 (Version None)
Quarter: 2004Q1

REPORT INFORMATION
  Report Type: 
  Country: None (occurrence: None)
  Receive Date: 20040315
  Receipt Date: 20040302
  Transmission Date: 20041129
  Serious: Yes (Death)
  Sender: FDA-Public Use
  Company Number: 2003-BP-07184PF (0)

PATIENT
  Age: 65 Year
  Sex: Male

DRUGS (2)
  1. SPIRIVA [Suspect]
     Dosage: 18 MCG (18 MCG, DAILY), IH
     Route: 045
  2. COMVIVENT [Concomitant]

REACTIONS (3)
  - BRONCHOSPASM [None]
  - DRUG INEFFECTIVE [None]
  - RESPIRATORY ARREST [None]
